FAERS Safety Report 8861403 (Version 1)
Quarter: 2012Q4

REPORT INFORMATION
  Report Type: Spontaneous
  Country: US (occurrence: None)
  Receive Date: 20121022
  Receipt Date: 20121022
  Transmission Date: 20130627
  Serious: Yes (Other)
  Sender: FDA-Public Use
  Company Number: FK201203070

PATIENT
  Age: 65 Year

DRUGS (3)
  1. DEXAMETHASONE [Suspect]
  2. VELCADE [Suspect]
  3. DOXIL [Suspect]

REACTIONS (1)
  - Urinary tract infection [None]
